FAERS Safety Report 16957616 (Version 1)
Quarter: 2019Q4

REPORT INFORMATION
  Report Type: Spontaneous
  Country: DE (occurrence: DE)
  Receive Date: 20191024
  Receipt Date: 20191024
  Transmission Date: 20200122
  Serious: Yes (Life-Threatening, Hospitalization)
  Sender: FDA-Public Use
  Company Number: DE-ELI_LILLY_AND_COMPANY-DE201910010753

PATIENT
  Age: 64 Year
  Sex: Female

DRUGS (1)
  1. EMGALITY [Suspect]
     Active Substance: GALCANEZUMAB-GNLM
     Indication: MIGRAINE
     Dosage: DAILY DOSE: 120 MG MILLGRAM(S) EVERY 30 DAYS
     Route: 058
     Dates: start: 20190614, end: 20190809

REACTIONS (2)
  - Cerebellar artery thrombosis [Not Recovered/Not Resolved]
  - Vertebral artery dissection [Not Recovered/Not Resolved]

NARRATIVE: CASE EVENT DATE: 20190806
